FAERS Safety Report 7771809-1 (Version None)
Quarter: 2011Q3

REPORT INFORMATION
  Report Type: 
  Country: None (occurrence: None)
  Receive Date: 20110922
  Receipt Date: 20110422
  Transmission Date: 20111222
  Serious: No
  Sender: FDA-Public Use
  Company Number: US-ASTRAZENECA-2009SE32566

PATIENT
  Age: 42 Year
  Sex: Female
  Weight: 99.8 kg

DRUGS (10)
  1. LEVAMEIR [Concomitant]
     Indication: DIABETES MELLITUS
     Dosage: 110 U DAILY
  2. PRILOSEC [Concomitant]
     Indication: GASTROOESOPHAGEAL REFLUX DISEASE
  3. NOVALOG [Concomitant]
     Indication: DIABETES MELLITUS
     Dosage: 40 U DAILY
  4. LISINOPRIL [Concomitant]
     Indication: HYPERTENSION
     Dosage: 20/25 DAILY
  5. METHADONE HCL [Concomitant]
     Indication: PAIN
  6. ATIVAN [Concomitant]
     Indication: ANXIETY
     Dosage: 0.5 PRN
  7. SEROQUEL [Suspect]
     Indication: ANXIETY
     Route: 048
  8. SEROQUEL [Suspect]
     Indication: DEPRESSION
     Route: 048
  9. SEROQUEL [Suspect]
     Route: 048
  10. SEROQUEL [Suspect]
     Route: 048

REACTIONS (8)
  - DRUG DOSE OMISSION [None]
  - INSOMNIA [None]
  - DEPRESSION [None]
  - BLOOD GLUCOSE INCREASED [None]
  - ANXIETY [None]
  - PANIC ATTACK [None]
  - MOOD ALTERED [None]
  - DRUG WITHDRAWAL SYNDROME [None]
